FAERS Safety Report 9958509 (Version 4)
Quarter: 2014Q1

REPORT INFORMATION
  Report Type: Report from Study
  Country: AU (occurrence: AU)
  Receive Date: 20140305
  Receipt Date: 20140321
  Transmission Date: 20141002
  Serious: Yes (Hospitalization)
  Sender: FDA-Public Use
  Company Number: AU-ROCHE-1354836

PATIENT
  Age: 64 Year
  Sex: Female
  Weight: 69.7 kg

DRUGS (8)
  1. VEMURAFENIB [Suspect]
     Indication: MALIGNANT MELANOMA
     Dosage: LAST DOSE PRIOR TO SAE 20/FEB/2014
     Route: 048
     Dates: start: 20131105
  2. ALLOPURINOL [Concomitant]
  3. DOXYCYCLINE [Concomitant]
  4. TENORMIN [Concomitant]
  5. MODURETIC [Concomitant]
  6. METOCLOPRAMIDE [Concomitant]
  7. PANTOPRAZOLE [Concomitant]
  8. ELOCON [Concomitant]

REACTIONS (1)
  - Pleuritic pain [Recovered/Resolved]
